FAERS Safety Report 10517971 (Version 1)
Quarter: 2014Q4

REPORT INFORMATION
  Report Type: Spontaneous
  Country: US (occurrence: US)
  Receive Date: 20141015
  Receipt Date: 20141015
  Transmission Date: 20150528
  Serious: Yes (Other)
  Sender: FDA-Public Use
  Company Number: US-BIOGENIDEC-2014BI106384

PATIENT
  Sex: Female

DRUGS (1)
  1. TYSABRI [Suspect]
     Active Substance: NATALIZUMAB
     Indication: MULTIPLE SCLEROSIS
     Route: 042
     Dates: start: 20120508

REACTIONS (4)
  - Gait disturbance [Not Recovered/Not Resolved]
  - Intracranial aneurysm [Unknown]
  - Heart rate increased [Not Recovered/Not Resolved]
  - Cardiac disorder [Not Recovered/Not Resolved]
